FAERS Safety Report 17973917 (Version 1)
Quarter: 2020Q3

REPORT INFORMATION
  Report Type: Spontaneous
  Country: US (occurrence: US)
  Receive Date: 20200702
  Receipt Date: 20200702
  Transmission Date: 20201103
  Serious: No
  Sender: FDA-Public Use
  Company Number: US-BLUEPRINT MEDICINES CORPORATION-SP-US-2020-000743

PATIENT
  Sex: Male

DRUGS (1)
  1. AYVAKIT [Suspect]
     Active Substance: AVAPRITINIB
     Indication: GASTROINTESTINAL STROMAL TUMOUR
     Route: 048
     Dates: start: 20200204

REACTIONS (8)
  - Weight increased [Unknown]
  - Abdominal distension [Unknown]
  - Erythema [Unknown]
  - Nausea [Unknown]
  - Peripheral swelling [Unknown]
  - Paracentesis [Unknown]
  - Blood albumin decreased [Unknown]
  - Protein total decreased [Unknown]
